FAERS Safety Report 6203391-4 (Version None)
Quarter: 2009Q2

REPORT INFORMATION
  Report Type: 
  Country: None (occurrence: None)
  Receive Date: 20090521
  Receipt Date: 20090506
  Transmission Date: 20091009
  Serious: Yes (Other)
  Sender: FDA-Public Use
  Company Number: 2009S1008352

PATIENT
  Sex: Female

DRUGS (2)
  1. TAMOXIFEN (TAMOXIFEN) (40 MG) [Suspect]
     Indication: BREAST CANCER
     Dosage: 40 MG;
  2. NOLVADEX [Concomitant]

REACTIONS (3)
  - BREAST CANCER [None]
  - CONDITION AGGRAVATED [None]
  - METASTASES TO BONE [None]
